FAERS Safety Report 17467127 (Version 1)
Quarter: 2020Q1

REPORT INFORMATION
  Report Type: Spontaneous
  Country: US (occurrence: US)
  Receive Date: 20200227
  Receipt Date: 20200227
  Transmission Date: 20200409
  Serious: No
  Sender: FDA-Public Use
  Company Number: US-BAYER-2020-023180

PATIENT
  Age: 24 Year
  Sex: Female
  Weight: 59 kg

DRUGS (2)
  1. AUGMENTIN [Suspect]
     Active Substance: AMOXICILLIN\CLAVULANATE POTASSIUM
  2. ALEVE [Suspect]
     Active Substance: NAPROXEN SODIUM
     Indication: PAIN
     Dosage: 2 DF, QID
     Route: 048
     Dates: start: 20200129, end: 20200129

REACTIONS (10)
  - Lip swelling [Recovered/Resolved]
  - Blister [Recovered/Resolved]
  - Incorrect dosage administered [Unknown]
  - Burning sensation [Recovered/Resolved]
  - Throat irritation [Recovered/Resolved]
  - Lip blister [Recovering/Resolving]
  - Urticaria [Not Recovered/Not Resolved]
  - Product prescribing error [Unknown]
  - Dermatitis allergic [None]
  - Oral discomfort [Recovered/Resolved]

NARRATIVE: CASE EVENT DATE: 20200129
